FAERS Safety Report 10618729 (Version 11)
Quarter: 2025Q1

REPORT INFORMATION
  Report Type: Spontaneous
  Country: US (occurrence: US)
  Receive Date: 20141202
  Receipt Date: 20250107
  Transmission Date: 20250408
  Serious: Yes (Other)
  Sender: PFIZER
  Company Number: US-PFIZER INC-2014328715

PATIENT
  Age: 73 Year
  Sex: Female
  Weight: 78.02 kg

DRUGS (2)
  1. XALKORI [Suspect]
     Active Substance: CRIZOTINIB
     Indication: Lung neoplasm malignant
     Dosage: 250MG CAPSULE BY MOUTH TWICE DAILY WITH FOOD
     Route: 048
     Dates: start: 20141028
  2. XALKORI [Suspect]
     Active Substance: CRIZOTINIB
     Indication: Non-small cell lung cancer stage IV

REACTIONS (7)
  - Pneumonia [Unknown]
  - Arthropathy [Unknown]
  - Neoplasm progression [Unknown]
  - Nausea [Recovered/Resolved]
  - Malaise [Unknown]
  - Nasopharyngitis [Unknown]
  - Fatigue [Unknown]
